FAERS Safety Report 6233983-8 (Version None)
Quarter: 2009Q2

REPORT INFORMATION
  Report Type: 
  Country: None (occurrence: None)
  Receive Date: 20090618
  Receipt Date: 20090610
  Transmission Date: 20091009
  Serious: Yes (Other)
  Sender: FDA-Public Use
  Company Number: JP-ASTRAZENECA-2009SE02567

PATIENT
  Age: 74 Year
  Sex: Female
  Weight: 74 kg

DRUGS (2)
  1. ANAPEINE [Suspect]
     Indication: NERVE BLOCK
     Route: 053
  2. BUPIVACAINE HYDROCHLORIDE [Concomitant]
     Indication: SPINAL ANAESTHESIA
     Route: 029

REACTIONS (1)
  - GRAND MAL CONVULSION [None]
